FAERS Safety Report 17861516 (Version 1)
Quarter: 2020Q2

REPORT INFORMATION
  Report Type: Report from Study
  Country: IT (occurrence: IT)
  Receive Date: 20200604
  Receipt Date: 20200604
  Transmission Date: 20200714
  Serious: Yes (Hospitalization)
  Sender: FDA-Public Use
  Company Number: IT-PFIZER INC-2020215872

PATIENT
  Age: 56 Year
  Sex: Female

DRUGS (2)
  1. XANAX [Suspect]
     Active Substance: ALPRAZOLAM
     Dosage: 40 DF, TOTAL
     Route: 048
     Dates: start: 20200424, end: 20200424
  2. PREGABALIN. [Suspect]
     Active Substance: PREGABALIN
     Dosage: 1050 MG, TOTAL
     Route: 048
     Dates: start: 20200424, end: 20200424

REACTIONS (5)
  - Suicide attempt [Unknown]
  - Loss of consciousness [Unknown]
  - Intentional overdose [Unknown]
  - Drug abuse [Unknown]
  - Hypoglycaemia [Unknown]

NARRATIVE: CASE EVENT DATE: 20200424
